FAERS Safety Report 5874291-4 (Version None)
Quarter: 2008Q3

REPORT INFORMATION
  Report Type: 
  Country: None (occurrence: None)
  Receive Date: 20080908
  Receipt Date: 20080827
  Transmission Date: 20090109
  Serious: Yes (Death)
  Sender: FDA-Public Use
  Company Number: US-ELI_LILLY_AND_COMPANY-US200808005920

PATIENT
  Age: 76 Year
  Sex: Male

DRUGS (4)
  1. XIGRIS [Suspect]
     Indication: SEPSIS
  2. LEVOPHED [Concomitant]
  3. EPINEPHRINE [Concomitant]
  4. VASOPRESSIN [Concomitant]

REACTIONS (1)
  - HYPERKALAEMIA [None]
